FAERS Safety Report 10182733 (Version 1)
Quarter: 2014Q2

REPORT INFORMATION
  Report Type: Spontaneous
  Country: US (occurrence: None)
  Receive Date: 20140425
  Receipt Date: 20140425
  Transmission Date: 20141212
  Serious: No
  Sender: FDA-Public Use
  Company Number: 1349938

PATIENT
  Age: 53 Year
  Sex: Female

DRUGS (1)
  1. VEMURAFENIB [Suspect]
     Indication: METASTATIC MALIGNANT MELANOMA
     Dosage: DOSE REDUCED MANY TIMES (960 MG, 2 IN 1 D), ORAL
     Route: 048

REACTIONS (1)
  - Recall phenomenon [None]
